FAERS Safety Report 9844874 (Version 2)
Quarter: 2014Q1

REPORT INFORMATION
  Report Type: Spontaneous
  Country: DE (occurrence: None)
  Receive Date: 20140122
  Receipt Date: 20140218
  Transmission Date: 20141002
  Serious: Yes (Other)
  Sender: FDA-Public Use
  Company Number: 7262534

PATIENT
  Age: 58 Year
  Sex: Female

DRUGS (2)
  1. EUTHYROX [Suspect]
     Indication: HYPOTHYROIDISM
     Route: 048
     Dates: start: 20131218, end: 20131223
  2. L-THYROXINE [Concomitant]

REACTIONS (1)
  - Laryngeal dyspnoea [None]
